FAERS Safety Report 5946953-1 (Version None)
Quarter: 2008Q4

REPORT INFORMATION
  Report Type: 
  Country: None (occurrence: None)
  Receive Date: 20081110
  Receipt Date: 20081103
  Transmission Date: 20090506
  Serious: Yes (Other)
  Sender: FDA-Public Use
  Company Number: US-AVENTIS-200816420US

PATIENT
  Sex: Female

DRUGS (6)
  1. LOVENOX [Suspect]
     Indication: DEEP VEIN THROMBOSIS
     Route: 058
     Dates: start: 20080722
  2. ATENOLOL [Concomitant]
     Dosage: DOSE: UNK
  3. SYNTHROID [Concomitant]
     Dosage: DOSE: UNK
  4. CELEXA [Concomitant]
     Dosage: DOSE: UNK
  5. DAIVOBET                           /01643401/ [Concomitant]
     Dosage: DOSE: UNK
  6. ANTIBIOTICS [Concomitant]
     Dosage: DOSE: UNK

REACTIONS (5)
  - ERYTHEMA [None]
  - INJECTION SITE ABSCESS [None]
  - INJECTION SITE CELLULITIS [None]
  - INJECTION SITE NECROSIS [None]
  - INJECTION SITE PRURITUS [None]
